FAERS Safety Report 6585774-6 (Version None)
Quarter: 2010Q1

REPORT INFORMATION
  Report Type: 
  Country: None (occurrence: None)
  Receive Date: 20100204
  Receipt Date: 20100121
  Transmission Date: 20100710
  Serious: Yes (Other)
  Sender: FDA-Public Use
  Company Number: 2010S1000418

PATIENT
  Sex: Female

DRUGS (4)
  1. PHOSHOSODA FLAVOR NOT SPECIFIED [Suspect]
     Indication: COLONOSCOPY
     Dosage: 90 ML; PO
     Route: 048
     Dates: start: 20021027
  2. PROTONIX  /01263201/ [Concomitant]
  3. FENTANYL [Concomitant]
  4. VERSED [Concomitant]

REACTIONS (1)
  - RENAL DISORDER [None]
